FAERS Safety Report 23299862 (Version 1)
Quarter: 2023Q4

REPORT INFORMATION
  Report Type: Spontaneous
  Country: US (occurrence: US)
  Receive Date: 20231215
  Receipt Date: 20231215
  Transmission Date: 20240110
  Serious: Yes (Other)
  Sender: FDA-Public Use
  Company Number: US-STRIDES ARCOLAB LIMITED-2023SP002267

PATIENT
  Age: 67 Year
  Sex: Male

DRUGS (49)
  1. MORPHINE SULFATE [Suspect]
     Active Substance: MORPHINE SULFATE
     Indication: Cancer pain
     Dosage: 15 MILLIGRAM, EVERY 8 HOURS, EXTENDED RELEASE, ON DAY 1 TO 4 OF ENCOUNTER
     Route: 065
  2. MORPHINE SULFATE [Suspect]
     Active Substance: MORPHINE SULFATE
     Dosage: 30 MILLIGRAM, EVERY 8 HOURS, EXTENDED RELEASE, ON DAY 5 OF ENCOUNTER
     Route: 065
  3. MORPHINE SULFATE [Suspect]
     Active Substance: MORPHINE SULFATE
     Dosage: 60 MILLIGRAM, EVERY 8 HOURS, EXTENDED RELEASE, ON DAY 6 OF ENCOUNTER
     Route: 065
  4. MORPHINE SULFATE [Suspect]
     Active Substance: MORPHINE SULFATE
     Dosage: 90 MILLIGRAM, EVERY 8 HOURS, EXTENDED RELEASE, ON DAY 7 OF ENCOUNTER
     Route: 065
  5. OXYCODONE [Suspect]
     Active Substance: OXYCODONE
     Indication: Cancer pain
     Dosage: UNK, EVERY 4 HRS, 5 TO 10 MG AS NEEDED, ON DAY 1 TO 4 OF ENCOUNTER. MAXIMUM BREAKTHROUGH 20MG TAKEN
     Route: 065
  6. OXYCODONE [Suspect]
     Active Substance: OXYCODONE
     Dosage: UNK, EVERY 4 HRS, 15 TO 20 MG AS NEEDED, ON DAY 5 OF ENCOUNTER. MAXIMUM BREAKTHROUGH 60MG TAKEN IN 2
     Route: 065
  7. OXYCODONE [Suspect]
     Active Substance: OXYCODONE
     Dosage: 40 MILLIGRAM, EVERY 4 HRS, AS NEEDED, ON DAY 6 OF ENCOUNTER. MAXIMUM BREAKTHROUGH 120MG TAKEN IN 24
     Route: 065
  8. GABAPENTIN [Suspect]
     Active Substance: GABAPENTIN
     Indication: Analgesic therapy
     Dosage: 900 MILLIGRAM, EVERY 8 HOURS, FROM DAY 1 TO 7 OF ENCOUNTER
     Route: 065
  9. GABAPENTIN [Suspect]
     Active Substance: GABAPENTIN
     Dosage: 3000 MILLIGRAM PER DAY, ON DAY 9 AND 10 OF ENCOUNTER
     Route: 065
  10. GABAPENTIN [Suspect]
     Active Substance: GABAPENTIN
     Dosage: 1200 MILLIGRAM, EVERY 8 HOURS, FROM DAY 1 TO DAY 10 OF HOSPITALSATION
     Route: 048
  11. FENTANYL [Suspect]
     Active Substance: FENTANYL\FENTANYL CITRATE
     Indication: Cancer pain
     Dosage: 100 MICROGRAM, EVERY HOUR, ON DAY 6 TO 10 OF HOSPITALISATION
     Route: 040
  12. FENTANYL [Suspect]
     Active Substance: FENTANYL\FENTANYL CITRATE
     Dosage: 300 MICROGRAM, EVERY HOUR, ON DAY 11 TO 16 OF HOSPITALISATION
     Route: 040
  13. FENTANYL [Suspect]
     Active Substance: FENTANYL\FENTANYL CITRATE
     Dosage: 600 MICROGRAM, ONCE AS NEEDED, ON DAY 17 TO 19 OF HOSPITALISATION
     Route: 040
  14. FENTANYL [Suspect]
     Active Substance: FENTANYL\FENTANYL CITRATE
     Dosage: 400 MICROGRAM, AS NEEDED, ON DAY 25 TO 28 OF HOSPITALISATION
     Route: 040
  15. HYDROMORPHONE [Suspect]
     Active Substance: HYDROMORPHONE
     Indication: Cancer pain
     Dosage: 8 MILLIGRAM, EVERY 8 HOURS, AS NEEDED. MAXIMUM BREAKTHROUGH 24 MG TAKEN IN 24 H, ON ENCOUNTER DAY 7
     Route: 042
  16. HYDROMORPHONE [Suspect]
     Active Substance: HYDROMORPHONE
     Dosage: UNK, EVERY 4 HRS, 32 TO 34 MG AS NEEDED, ON ENCOUNTER DAY 9. MAXIMUM BREAKTHROUGH 64 MG TAKEN IN 24
     Route: 042
  17. KETAMINE [Suspect]
     Active Substance: KETAMINE
     Indication: Cancer pain
     Dosage: 16 MILLIGRAM, CONTINUOUS INFUSION, ON DAY 11 TO 16 OF HOSPITALISATION
     Route: 042
  18. KETAMINE [Suspect]
     Active Substance: KETAMINE
     Dosage: 20 MILLIGRAM, CONTINUOUS INFUSION, ON DAY 17 TO 28 OF HOSPITALISATION
     Route: 042
  19. METHADONE [Suspect]
     Active Substance: METHADONE HYDROCHLORIDE
     Indication: Cancer pain
     Dosage: 20 MILLIGRAM, EVERY 8 HRS, ON DAY 9
     Route: 065
  20. METHADONE [Suspect]
     Active Substance: METHADONE HYDROCHLORIDE
     Dosage: 20 MILLIGRAM, EVERY 6 HRS, ON DAY 10
     Route: 065
  21. METHADONE [Suspect]
     Active Substance: METHADONE HYDROCHLORIDE
     Dosage: 5 MILLIGRAM, EVERY 6 HRS, AS NEEDED, ON ENCOUNTER DAY 10. MAXIMUM BREAKTHROUGH 20MG DOSE TAKEN IN 24
     Route: 065
  22. METHADONE [Suspect]
     Active Substance: METHADONE HYDROCHLORIDE
     Dosage: 10 MILLIGRAM, EVERY 8 HOURS,ON DAY 1 TO 10 OF HOSPITALISATION. MAXIMUM 10 MG DOSE DELIVERED IN 24 H
     Route: 048
  23. METHADONE [Suspect]
     Active Substance: METHADONE HYDROCHLORIDE
     Dosage: 5 MILLIGRAM, EVERY 6 HRS, AS NEEDED, ON DAY 1 TO 5 OF HOSPITALISATION. MAXIMUM 10 MG DOSE DELIVERED
     Route: 048
  24. METHADONE [Suspect]
     Active Substance: METHADONE HYDROCHLORIDE
     Dosage: 5 MILLIGRAM, EVERY 8 HRS (AS NEEDED, ON DAY 11 TO 16 OF HOSPITALISATION)
     Route: 040
  25. METHADONE [Suspect]
     Active Substance: METHADONE HYDROCHLORIDE
     Dosage: 4 MILLIGRAM, EVERY HOUR (ON DAY 17 TO 19 OF HOSPITALISATION)
     Route: 040
  26. METHADONE [Suspect]
     Active Substance: METHADONE HYDROCHLORIDE
     Dosage: 6 MILLIGRAM, EVERY HOUR (ON DAY 20 TO 28 OF HOSPITALISATION)
     Route: 040
  27. MOGAMULIZUMAB [Concomitant]
     Active Substance: MOGAMULIZUMAB
     Indication: Cutaneous T-cell lymphoma
     Dosage: UNK
     Route: 065
  28. ACETAMINOPHEN [Concomitant]
     Active Substance: ACETAMINOPHEN
     Indication: Neuralgia
     Dosage: 1 GRAM, EVERY 8 HRS, FROM ENCOUNTER DAY 1 TO 10 AND HOSPITAL DAY 1 TO 19
     Route: 042
  29. ACETAMINOPHEN [Concomitant]
     Active Substance: ACETAMINOPHEN
     Indication: Inflammatory pain
  30. BRENTUXIMAB [Concomitant]
     Active Substance: BRENTUXIMAB
     Indication: Cutaneous T-cell lymphoma
     Dosage: UNK
     Route: 065
  31. CYCLOPHOSPHAMIDE [Concomitant]
     Active Substance: CYCLOPHOSPHAMIDE
     Indication: Cutaneous T-cell lymphoma
     Dosage: UNK
     Route: 065
  32. ETOPOSIDE [Concomitant]
     Active Substance: ETOPOSIDE
     Indication: Cutaneous T-cell lymphoma
     Dosage: UNK
     Route: 065
  33. DULOXETINE [Concomitant]
     Active Substance: DULOXETINE
     Indication: Inflammatory pain
     Dosage: 30 MILLIGRAM PER DAY, ON HOSPITAL DAY 1 TO 5 AND NIGHTLY AT BEDTIME ON HOSPITAL DAY 6 TO 10
     Route: 048
  34. DULOXETINE [Concomitant]
     Active Substance: DULOXETINE
     Indication: Neuralgia
  35. DEXMEDETOMIDINE [Concomitant]
     Active Substance: DEXMEDETOMIDINE
     Indication: Sedation
     Dosage: 1.4 MICROGRAM/KILOGRAM, EVERY HOUR, ON HOSPITAL DAY 11 TO 16
     Route: 042
  36. DEXMEDETOMIDINE [Concomitant]
     Active Substance: DEXMEDETOMIDINE
     Dosage: 0.6 MICROGRAM/KILOGRAM, EVERY HOUR, ON HOSPITAL DAY 17 TO 19
     Route: 042
  37. HALOPERIDOL [Concomitant]
     Active Substance: HALOPERIDOL
     Indication: Product used for unknown indication
     Dosage: 1 MILLIGRAM PER DAY, NIGHTLY AT BEDTIME, ON HOSPITAL DAY 11 TO 16
     Route: 042
  38. IBUPROFEN [Concomitant]
     Active Substance: IBUPROFEN
     Indication: Cancer pain
     Dosage: 400 MILLIGRAM, EVERY 12 HRS, FROM ENCOUNTER DAY 1 TO 10
     Route: 065
  39. KETOROLAC [Concomitant]
     Active Substance: KETOROLAC TROMETHAMINE
     Indication: Neuralgia
     Dosage: 15 MILLIGRAM, EVERY 6 HRS, AS NEEDED ON HOSPITAL DAY 1 TO 16
     Route: 042
  40. KETOROLAC [Concomitant]
     Active Substance: KETOROLAC TROMETHAMINE
     Indication: Inflammatory pain
  41. LORAZEPAM [Concomitant]
     Active Substance: LORAZEPAM
     Indication: Sedation
     Dosage: 0.5 MILLIGRAM, EVERY 6 HRS, AS NEEDED ON HOSPITAL DAY 6 TO 10
     Route: 042
  42. LORAZEPAM [Concomitant]
     Active Substance: LORAZEPAM
     Dosage: 1 MILLIGRAM, EVERY 12 HRS, ON HOSPITAL DAY 11 TO 19
     Route: 042
  43. LORAZEPAM [Concomitant]
     Active Substance: LORAZEPAM
     Dosage: 1 MILLIGRAM, EVERY 6 HRS, ON HOSPITAL DAY 20 TO 28
     Route: 042
  44. METHYLPREDNISOLONE [Concomitant]
     Active Substance: METHYLPREDNISOLONE
     Indication: Neuralgia
     Dosage: 70 MILLIGRAM PER DAY, ON HOSPITAL DAY 1 TO 16 AND HOSPITAL DAY 25 TO 28
     Route: 042
  45. METHYLPREDNISOLONE [Concomitant]
     Active Substance: METHYLPREDNISOLONE
     Indication: Inflammatory pain
     Dosage: 60 MILLIGRAM PER DAY, ON HOSPITAL DAY 17 TO 19
     Route: 042
  46. METHYLPREDNISOLONE [Concomitant]
     Active Substance: METHYLPREDNISOLONE
     Dosage: 40 MILLIGRAM PER DAY, ON HOSPITAL DAY 20 TO 24
     Route: 042
  47. PREDNISONE [Concomitant]
     Active Substance: PREDNISONE
     Indication: Neuralgia
     Dosage: 80 MILLIGRAM PER DAY, ON ENCOUNTER DAY 9
     Route: 065
  48. PREDNISONE [Concomitant]
     Active Substance: PREDNISONE
     Indication: Inflammatory pain
     Dosage: 30 MILLIGRAM PER DAY, ON ENCOUNTER DAY 10
     Route: 065
  49. PROPOFOL [Concomitant]
     Active Substance: PROPOFOL
     Indication: Sedation
     Dosage: 50 MICROGRAM/KILOGRAM PER MIN, ON HOSPITAL DAY 17 TO 28
     Route: 042

REACTIONS (4)
  - Hallucination [Unknown]
  - Therapy partial responder [Unknown]
  - Confusional state [Unknown]
  - Sedation [Unknown]
